FAERS Safety Report 5065952-8 (Version None)
Quarter: 2006Q3

REPORT INFORMATION
  Report Type: 
  Country: None (occurrence: None)
  Receive Date: 20060728
  Receipt Date: 20060728
  Transmission Date: 20061208
  Serious: Yes (Hospitalization)
  Sender: FDA-Public Use
  Company Number: None

PATIENT
  Age: 51 Year
  Sex: Male
  Weight: 97.7 kg

DRUGS (9)
  1. METFORMIN [Suspect]
     Indication: DIABETES MELLITUS NON-INSULIN-DEPENDENT
     Dosage: 850 MG PO TID
     Route: 048
  2. ATENOLOL [Concomitant]
  3. NIFEREX [Concomitant]
  4. NORVASC [Concomitant]
  5. GLIPIZIDE [Concomitant]
  6. ENALAPRIL MALEATE [Concomitant]
  7. LASIX [Concomitant]
  8. GLUCOPHAGE [Concomitant]
  9. ASPIRIN [Concomitant]

REACTIONS (9)
  - BLOOD POTASSIUM INCREASED [None]
  - BRADYCARDIA [None]
  - GLOMERULAR FILTRATION RATE DECREASED [None]
  - HAEMODIALYSIS [None]
  - HEART RATE INCREASED [None]
  - LACTIC ACIDOSIS [None]
  - METABOLIC ACIDOSIS [None]
  - MULTI-ORGAN FAILURE [None]
  - RESPIRATORY ARREST [None]
